FAERS Safety Report 15785825 (Version 1)
Quarter: 2019Q1

REPORT INFORMATION
  Report Type: Spontaneous
  Country: US (occurrence: US)
  Receive Date: 20190101
  Receipt Date: 20190101
  Transmission Date: 20190417
  Serious: No
  Sender: FDA-Public Use
  Company Number: None

PATIENT
  Age: 57 Year
  Sex: Female
  Weight: 98.1 kg

DRUGS (11)
  1. DULOXETINE HYDROCHLORIDE. [Suspect]
     Active Substance: DULOXETINE HYDROCHLORIDE
     Indication: NEUROPATHY PERIPHERAL
  2. NATURE-THROID [Concomitant]
     Active Substance: THYROID, PORCINE
  3. SELENIUM [Concomitant]
     Active Substance: SELENIUM
  4. ASA [Concomitant]
     Active Substance: ASPIRIN
  5. DIM [Concomitant]
  6. TURMERIC [Concomitant]
     Active Substance: HERBALS\TURMERIC
  7. IODINE. [Concomitant]
     Active Substance: IODINE
  8. MULTIVITAMIN [Concomitant]
     Active Substance: VITAMINS
  9. VITAMIN C [Concomitant]
     Active Substance: ASCORBIC ACID
  10. ZINC. [Concomitant]
     Active Substance: ZINC
  11. MAG GLYCINATE [Concomitant]

REACTIONS (5)
  - Back pain [None]
  - Muscle spasms [None]
  - Arthralgia [None]
  - Pyrexia [None]
  - Drug withdrawal syndrome [None]

NARRATIVE: CASE EVENT DATE: 20181111
